FAERS Safety Report 9738706 (Version 2)
Quarter: 2014Q1

REPORT INFORMATION
  Report Type: Spontaneous
  Country: US (occurrence: US)
  Receive Date: 20131209
  Receipt Date: 20140211
  Transmission Date: 20141002
  Serious: Yes (Hospitalization)
  Sender: FDA-Public Use
  Company Number: US-BIOGENIDEC-2013BI116341

PATIENT
  Age: 55 Year
  Sex: Female

DRUGS (13)
  1. TECFIDERA [Suspect]
     Indication: MULTIPLE SCLEROSIS
     Route: 048
     Dates: start: 20130524
  2. DIAZEPAM [Concomitant]
  3. LEXAPRO [Concomitant]
  4. NORVASE [Concomitant]
  5. PRILOSEC [Concomitant]
  6. PYRIDIUM [Concomitant]
  7. VESICARE [Concomitant]
  8. SUCRALFATE [Concomitant]
  9. PROMETHAZINE HCL [Concomitant]
  10. PERCOCET [Concomitant]
  11. NITROGLYCERIN [Concomitant]
  12. FLEXERIL [Concomitant]
  13. ALBUTEROL SULFATE [Concomitant]

REACTIONS (2)
  - Hypotension [Unknown]
  - Hypokalaemia [Unknown]
